FAERS Safety Report 4894769-X (Version None)
Quarter: 2006Q1

REPORT INFORMATION
  Report Type: 
  Country: None (occurrence: None)
  Receive Date: 20060126
  Receipt Date: 20060126
  Transmission Date: 20060701
  Serious: Yes (Life-Threatening, Hospitalization)
  Sender: FDA-Public Use
  Company Number: None

PATIENT
  Age: 67 Year
  Sex: Male
  Weight: 70.7611 kg

DRUGS (2)
  1. LEVAQUIN [Suspect]
     Indication: PNEUMONIA
     Dosage: TWICE DAILY
     Dates: start: 20060118, end: 20060122
  2. LEVAQUIN [Suspect]
     Indication: PNEUMONIA
     Dosage: TWICE DAILY
     Dates: start: 20060123, end: 20060124

REACTIONS (1)
  - BLOOD GLUCOSE INCREASED [None]
